FAERS Safety Report 9019631 (Version 2)
Quarter: 2013Q1

REPORT INFORMATION
  Report Type: Spontaneous
  Country: FR (occurrence: FR)
  Receive Date: 20130118
  Receipt Date: 20130128
  Transmission Date: 20140127
  Serious: Yes (Hospitalization, Other)
  Sender: FDA-Public Use
  Company Number: FR-ROCHE-1180269

PATIENT
  Age: 90 Year
  Sex: Female

DRUGS (6)
  1. LUCENTIS [Suspect]
     Indication: AGE-RELATED MACULAR DEGENERATION
     Route: 050
     Dates: start: 201109
  2. LUCENTIS [Suspect]
     Route: 050
     Dates: start: 201111, end: 201111
  3. LERCAN [Concomitant]
  4. TEMERIT [Concomitant]
  5. FLUDEX [Concomitant]
     Route: 065
  6. DIAMOX [Concomitant]

REACTIONS (1)
  - Peripheral artery thrombosis [Not Recovered/Not Resolved]
